FAERS Safety Report 8319817-6 (Version None)
Quarter: 2012Q1

REPORT INFORMATION
  Report Type: 
  Country: None (occurrence: None)
  Receive Date: 20120315
  Receipt Date: 20110311
  Transmission Date: 20120608
  Serious: Yes (Other)
  Sender: FDA-Public Use
  Company Number: PHHY2011US15664

PATIENT
  Age: 68 Year
  Sex: Male

DRUGS (6)
  1. COUMADIN [Concomitant]
  2. ACETAMINOPHEN [Concomitant]
  3. PAROXETINE HCL [Concomitant]
  4. BACLOFEN [Concomitant]
  5. VITAMIN D [Concomitant]
  6. GILENYA [Suspect]
     Indication: MULTIPLE SCLEROSIS
     Dosage: 0.5 MG, QD, ORAL
     Route: 048
     Dates: start: 20110114, end: 20110219

REACTIONS (4)
  - PHOTOPHOBIA [None]
  - MACULAR OEDEMA [None]
  - VISION BLURRED [None]
  - EYE PAIN [None]
